FAERS Safety Report 24537219 (Version 3)
Quarter: 2025Q3

REPORT INFORMATION
  Report Type: Spontaneous
  Country: US (occurrence: US)
  Receive Date: 20241022
  Receipt Date: 20250713
  Transmission Date: 20251021
  Serious: No
  Sender: SANOFI AVENTIS
  Company Number: US-SA-2024SA301399

PATIENT
  Age: 77 Year
  Sex: Male

DRUGS (1)
  1. DUPIXENT [Suspect]
     Active Substance: DUPILUMAB
     Indication: Dermatitis atopic
     Dosage: 300 MG, QOW
     Route: 058

REACTIONS (7)
  - Skin haemorrhage [Unknown]
  - Skin weeping [Unknown]
  - Rash [Recovering/Resolving]
  - Dermatitis atopic [Unknown]
  - Erythema [Unknown]
  - Pruritus [Recovering/Resolving]
  - Skin exfoliation [Unknown]
